FAERS Safety Report 7460144-7 (Version None)
Quarter: 2011Q2

REPORT INFORMATION
  Report Type: 
  Country: None (occurrence: None)
  Receive Date: 20110505
  Receipt Date: 20110428
  Transmission Date: 20111010
  Serious: Yes (Hospitalization, Other)
  Sender: FDA-Public Use
  Company Number: US-ELI_LILLY_AND_COMPANY-US201104008019

PATIENT
  Sex: Female

DRUGS (3)
  1. HUMALOG [Suspect]
     Dosage: UNK, OTHER
  2. LANTUS [Concomitant]
     Dosage: UNK
  3. HUMALOG [Suspect]
     Indication: TYPE 2 DIABETES MELLITUS
     Dosage: UNK, OTHER
     Dates: start: 20050101

REACTIONS (5)
  - BLINDNESS UNILATERAL [None]
  - GLAUCOMA [None]
  - BLINDNESS TRANSIENT [None]
  - INCORRECT DOSE ADMINISTERED [None]
  - ASTHMA [None]
